FAERS Safety Report 5278994-4 (Version None)
Quarter: 2007Q1

REPORT INFORMATION
  Report Type: 
  Country: None (occurrence: None)
  Receive Date: 20070328
  Receipt Date: 20061019
  Transmission Date: 20070707
  Serious: Yes (Hospitalization)
  Sender: FDA-Public Use
  Company Number: US-AMGEN-US197374

PATIENT
  Sex: Female

DRUGS (4)
  1. NEULASTA [Suspect]
     Indication: CHEMOTHERAPY
     Route: 058
     Dates: start: 20061012, end: 20061012
  2. LISINOPRIL [Concomitant]
     Route: 065
  3. ADRIAMYCIN PFS [Concomitant]
     Route: 065
     Dates: start: 20061011, end: 20061011
  4. CYTOXAN [Concomitant]
     Route: 065
     Dates: start: 20061011, end: 20061011

REACTIONS (1)
  - FEBRILE NEUTROPENIA [None]
